FAERS Safety Report 7339202-3 (Version None)
Quarter: 2011Q1

REPORT INFORMATION
  Report Type: 
  Country: None (occurrence: None)
  Receive Date: 20110308
  Receipt Date: 20101208
  Transmission Date: 20110831
  Serious: No
  Sender: FDA-Public Use
  Company Number: US-BAYER-2011-001766

PATIENT
  Sex: Female
  Weight: 55 kg

DRUGS (2)
  1. ALEVE [Suspect]
     Indication: ANALGESIC THERAPY
  2. ASPIRIN [Concomitant]

REACTIONS (1)
  - DRUG INEFFECTIVE [None]
